FAERS Safety Report 9176157 (Version 1)
Quarter: 2012Q4

REPORT INFORMATION
  Report Type: 
  Country: US (occurrence: US)
  Receive Date: 20120926
  Receipt Date: 20120926
  Transmission Date: 20130627
  Serious: Yes (Other)
  Sender: FDA-Public Use
  Company Number: US-RB-027745-11

PATIENT
  Age: 41 None
  Sex: Female

DRUGS (4)
  1. SUBUTEX [Suspect]
     Indication: DRUG DEPENDENCE
     Route: 060
     Dates: start: 20110518, end: 20110921
  2. HEROIN [Suspect]
     Dosage: Dosage unknown.
  3. XANAX [Suspect]
     Dosage: Dosage unknown
  4. COCAINE [Suspect]
     Dosage: Dosage unknown.

REACTIONS (4)
  - Selective abortion [Recovered/Resolved]
  - Exposure during pregnancy [Recovered/Resolved]
  - Drug dependence [Unknown]
  - Drug abuse [Unknown]
